FAERS Safety Report 11465928 (Version 1)
Quarter: 2015Q3

REPORT INFORMATION
  Report Type: Spontaneous
  Country: AT (occurrence: AT)
  Receive Date: 20150907
  Receipt Date: 20150907
  Transmission Date: 20151125
  Serious: Yes (Death)
  Sender: FDA-Public Use
  Company Number: AT-009507513-1508AUT013956

PATIENT
  Age: 52 Year
  Sex: Female

DRUGS (3)
  1. RISPERIDONE. [Suspect]
     Active Substance: RISPERIDONE
  2. FLUPHENAZINE [Suspect]
     Active Substance: FLUPHENAZINE
  3. MIRTAZAPINE. [Suspect]
     Active Substance: MIRTAZAPINE
     Dosage: UNK

REACTIONS (1)
  - Hypotension [Fatal]
